FAERS Safety Report 25504464 (Version 3)
Quarter: 2025Q3

REPORT INFORMATION
  Report Type: Spontaneous
  Country: AR (occurrence: AR)
  Receive Date: 20250702
  Receipt Date: 20250714
  Transmission Date: 20251021
  Serious: No
  Sender: MYLAN
  Company Number: AR-MYLANLABS-2025M1055595

PATIENT
  Age: 57 Year
  Sex: Male

DRUGS (2)
  1. CLOZAPINE [Suspect]
     Active Substance: CLOZAPINE
     Indication: Product used for unknown indication
     Dosage: 50 MILLIGRAM, BID (APPROX. DATE: 13-AUG-2024)
     Dates: start: 202408, end: 20250701
  2. CLOZAPINE [Suspect]
     Active Substance: CLOZAPINE

REACTIONS (4)
  - Lymphocyte count increased [Unknown]
  - Red blood cell count decreased [Unknown]
  - Haematocrit decreased [Unknown]
  - Haemoglobin decreased [Unknown]

NARRATIVE: CASE EVENT DATE: 20250607
